FAERS Safety Report 7624815-1 (Version None)
Quarter: 2011Q3

REPORT INFORMATION
  Report Type: 
  Country: None (occurrence: None)
  Receive Date: 20110720
  Receipt Date: 20110711
  Transmission Date: 20111222
  Serious: Yes (Hospitalization)
  Sender: FDA-Public Use
  Company Number: FR-ASTRAZENECA-2011SE41892

PATIENT
  Age: 60 Year
  Sex: Male

DRUGS (14)
  1. NEXIUM [Concomitant]
     Route: 048
  2. LOVENOX [Concomitant]
  3. RAMIPRIL ACT [Concomitant]
     Route: 048
  4. GLUCOPHAGE [Concomitant]
  5. VANCOMYCINE HYDROCHLORIDE [Concomitant]
  6. SUFENTA PRESERVATIVE FREE [Suspect]
     Route: 065
     Dates: start: 20110328, end: 20110328
  7. GABAPENTIN [Suspect]
     Route: 048
     Dates: end: 20110331
  8. SECTRAL [Concomitant]
  9. DIPRIVAN [Suspect]
     Route: 042
     Dates: start: 20110328, end: 20110328
  10. GENTAMICIN [Concomitant]
  11. ATORVASTATIN CALCIUM [Suspect]
     Route: 048
     Dates: end: 20110331
  12. PLAVIX [Suspect]
     Route: 048
     Dates: end: 20110331
  13. ASPIRIN [Concomitant]
  14. LEVEMIR [Concomitant]

REACTIONS (1)
  - CYTOLYTIC HEPATITIS [None]
